FAERS Safety Report 9759543 (Version 1)
Quarter: 2013Q4

REPORT INFORMATION
  Report Type: Spontaneous
  Country: US (occurrence: US)
  Receive Date: 20131216
  Receipt Date: 20131216
  Transmission Date: 20140711
  Serious: No
  Sender: FDA-Public Use
  Company Number: US-GILEAD-2010-0028013

PATIENT
  Sex: Female
  Weight: 61.23 kg

DRUGS (12)
  1. LETAIRIS [Suspect]
     Indication: PULMONARY ARTERIAL HYPERTENSION
     Route: 048
     Dates: start: 20080212
  2. REVATIO [Concomitant]
  3. ASPIRIN [Concomitant]
  4. LASIX [Concomitant]
  5. ADVAIR [Concomitant]
  6. SPIRIVA [Concomitant]
  7. ALBUTEROL [Concomitant]
  8. PROTONIX [Concomitant]
  9. XANAX [Concomitant]
  10. DETROL [Concomitant]
  11. STOOL SOFTNER [Concomitant]
  12. FOLIC ACID [Concomitant]

REACTIONS (1)
  - Pain in extremity [Unknown]
